FAERS Safety Report 24725589 (Version 1)
Quarter: 2024Q4

REPORT INFORMATION
  Report Type: Report from Study
  Country: US (occurrence: US)
  Receive Date: 20241212
  Receipt Date: 20241212
  Transmission Date: 20250115
  Serious: Yes (Other)
  Sender: RANBAXY
  Company Number: US-SUN PHARMACEUTICAL INDUSTRIES LTD-2024R1-484155

PATIENT
  Sex: Male

DRUGS (3)
  1. DOXORUBICIN [Suspect]
     Active Substance: DOXORUBICIN
     Indication: Germ cell cancer
     Dosage: 30 MILLIGRAM/SQ. METER OVER 15 MINUTES
     Route: 042
  2. CISPLATIN [Suspect]
     Active Substance: CISPLATIN
     Indication: Germ cell cancer
     Dosage: 30 MILLIGRAM/SQ. METER, OVER 2 HOURS
     Route: 042
  3. PACLITAXEL [Suspect]
     Active Substance: PACLITAXEL
     Indication: Germ cell cancer
     Dosage: 100 MILLIGRAM/SQ. METER, OVER ONE HOUR EVERY 2-3 WEEKS
     Route: 042

REACTIONS (1)
  - Neoplasm progression [Unknown]
